FAERS Safety Report 8329501-0 (Version None)
Quarter: 2012Q2

REPORT INFORMATION
  Report Type: 
  Country: None (occurrence: None)
  Receive Date: 20120502
  Receipt Date: 20120426
  Transmission Date: 20120825
  Serious: Yes (Hospitalization)
  Sender: FDA-Public Use
  Company Number: JP-ROCHE-1063674

PATIENT
  Sex: Male
  Weight: 59.4 kg

DRUGS (13)
  1. LANSOPRAZOLE [Concomitant]
     Route: 048
     Dates: start: 20110418
  2. KERATINAMIN [Concomitant]
     Route: 061
     Dates: start: 20110606
  3. CIRCANETTEN [Concomitant]
     Route: 048
     Dates: start: 20110615
  4. BECLOMETHASONE DIPROPIONATE [Concomitant]
     Route: 062
     Dates: start: 20110408
  5. TARCEVA [Suspect]
     Indication: NON-SMALL CELL LUNG CANCER
     Route: 048
     Dates: start: 20110404
  6. AMLODIPINE BESYLATE [Suspect]
     Indication: PRODUCT USED FOR UNKNOWN INDICATION
     Route: 048
  7. TELMISARTAN [Suspect]
     Indication: PRODUCT USED FOR UNKNOWN INDICATION
     Route: 048
  8. MAGMITT [Concomitant]
     Route: 048
     Dates: start: 20110413
  9. LOCOID [Concomitant]
     Route: 061
     Dates: start: 20111226
  10. INDAPAMIDE [Suspect]
     Indication: PRODUCT USED FOR UNKNOWN INDICATION
     Route: 048
     Dates: start: 20111216
  11. BORRAZA-G [Concomitant]
     Route: 054
     Dates: start: 20110615
  12. RINDERON-VG [Concomitant]
     Route: 062
     Dates: start: 20110616
  13. AVASTIN [Suspect]
     Indication: NON-SMALL CELL LUNG CANCER
     Dosage: INFUSION RATE DECREASED
     Route: 042
     Dates: start: 20110404

REACTIONS (1)
  - VERTIGO POSITIONAL [None]
